FAERS Safety Report 20678954 (Version 1)
Quarter: 2022Q2

REPORT INFORMATION
  Report Type: Spontaneous
  Country: JP (occurrence: JP)
  Receive Date: 20220406
  Receipt Date: 20220406
  Transmission Date: 20220721
  Serious: Yes (Hospitalization)
  Sender: FDA-Public Use
  Company Number: JP-MSD-2203JPN004447J

PATIENT
  Age: 68 Year
  Sex: Female

DRUGS (13)
  1. MOLNUPIRAVIR [Suspect]
     Active Substance: MOLNUPIRAVIR
     Indication: COVID-19 treatment
     Dosage: 800 MILLIGRAM, BID
     Route: 048
     Dates: start: 20220329, end: 20220329
  2. DEXTROMETHORPHAN HYDROBROMIDE [Concomitant]
     Active Substance: DEXTROMETHORPHAN HYDROBROMIDE
     Dosage: 15 MILLIGRAM
     Route: 065
  3. CALONAL [Concomitant]
     Active Substance: ACETAMINOPHEN
     Dosage: 200 MILLIGRAM
     Route: 048
  4. PIOGLITAZONE HYDROCHLORIDE [Concomitant]
     Active Substance: PIOGLITAZONE HYDROCHLORIDE
     Dosage: UNK
     Route: 048
  5. SITAGLIPTIN [Concomitant]
     Active Substance: SITAGLIPTIN
     Dosage: 100 MILLIGRAM
     Route: 048
  6. DAPAGLIFLOZIN [Concomitant]
     Active Substance: DAPAGLIFLOZIN
     Dosage: 5 MILLIGRAM
     Route: 048
  7. LEVOTHYROXINE SODIUM [Concomitant]
     Active Substance: LEVOTHYROXINE SODIUM
     Dosage: 50 MICROGRAM
     Route: 048
  8. METHIMAZOLE [Concomitant]
     Active Substance: METHIMAZOLE
     Dosage: 5 MILLIGRAM
     Route: 048
  9. BISOPROLOL FUMARATE [Concomitant]
     Active Substance: BISOPROLOL FUMARATE
     Dosage: 2.5 MILLIGRAM
     Route: 065
  10. METGLUCO [Concomitant]
     Active Substance: METFORMIN HYDROCHLORIDE
     Dosage: 250 MILLIGRAM
     Route: 048
  11. ATORVASTATIN CALCIUM TRIHYDRATE [Concomitant]
     Active Substance: ATORVASTATIN CALCIUM TRIHYDRATE
     Dosage: 10 MILLIGRAM
     Route: 048
  12. REPAGLINIDE [Concomitant]
     Active Substance: REPAGLINIDE
     Route: 048
  13. SARPOGRELATE HYDROCHLORIDE [Concomitant]
     Active Substance: SARPOGRELATE HYDROCHLORIDE
     Route: 048

REACTIONS (2)
  - Adverse event [Unknown]
  - Vomiting [Unknown]

NARRATIVE: CASE EVENT DATE: 20220301
